FAERS Safety Report 11395297 (Version 1)
Quarter: 2015Q3

REPORT INFORMATION
  Report Type: Other
  Country: FR (occurrence: FR)
  Receive Date: 20150819
  Receipt Date: 20150819
  Transmission Date: 20151125
  Serious: Yes (Hospitalization)
  Sender: FDA-Public Use
  Company Number: FR-MYLANLABS-2015M1026753

PATIENT

DRUGS (11)
  1. PIRILENE [Suspect]
     Active Substance: PYRAZINAMIDE
     Indication: TUBERCULOSIS
     Dosage: 4 DF, QD
     Route: 048
     Dates: start: 20150312, end: 20150531
  2. PIRILENE [Suspect]
     Active Substance: PYRAZINAMIDE
     Dosage: UNK
     Dates: start: 20150612, end: 20150616
  3. PASER [Suspect]
     Active Substance: AMINOSALICYLIC ACID
     Indication: TUBERCULOSIS
     Dosage: 3 UNK, UNK
     Dates: start: 20150514, end: 20150531
  4. CYCLOSERINE. [Suspect]
     Active Substance: CYCLOSERINE
     Dosage: UNK
     Dates: start: 20150603
  5. PASER [Suspect]
     Active Substance: AMINOSALICYLIC ACID
     Dosage: UNK
     Dates: start: 20150603
  6. CYCLOSERINE. [Suspect]
     Active Substance: CYCLOSERINE
     Dosage: UNK
     Dates: start: 20150312, end: 20150324
  7. LEVOFLOXACINE MYLAN 500 MG COMPRIM? PELLICUL? S?CABLE [Suspect]
     Active Substance: LEVOFLOXACIN
     Indication: TUBERCULOSIS
     Dosage: 2 DF, QD
     Route: 048
     Dates: start: 20150324, end: 20150531
  8. LEVOFLOXACINE MYLAN 500 MG COMPRIM? PELLICUL? S?CABLE [Suspect]
     Active Substance: LEVOFLOXACIN
     Dosage: UNK
     Dates: start: 20150715, end: 20150718
  9. MYAMBUTOL [Suspect]
     Active Substance: ETHAMBUTOL HYDROCHLORIDE
     Indication: TUBERCULOSIS
     Dosage: 4 DF, QD
     Route: 048
     Dates: start: 20150312, end: 20150531
  10. CYCLOSERINE. [Suspect]
     Active Substance: CYCLOSERINE
     Indication: TUBERCULOSIS
     Dosage: 2 DF, QD
     Route: 048
     Dates: start: 20150514, end: 20150531
  11. PASER [Suspect]
     Active Substance: AMINOSALICYLIC ACID
     Dosage: UNK UNK, QD
     Route: 048
     Dates: start: 20150312, end: 20150324

REACTIONS (4)
  - Lipase increased [Recovering/Resolving]
  - Decreased appetite [Recovered/Resolved]
  - Hepatocellular injury [Recovered/Resolved]
  - Abdominal pain [Recovered/Resolved]

NARRATIVE: CASE EVENT DATE: 20150526
